FAERS Safety Report 15751126 (Version 1)
Quarter: 2018Q4

REPORT INFORMATION
  Report Type: Spontaneous
  Country: US (occurrence: US)
  Receive Date: 20181221
  Receipt Date: 20181221
  Transmission Date: 20190205
  Serious: No
  Sender: FDA-Public Use
  Company Number: US-THERAPEUTICSMD-2018TMD00158

PATIENT
  Sex: Female
  Weight: 68.03 kg

DRUGS (4)
  1. IMVEXXY [Suspect]
     Active Substance: ESTRADIOL
     Indication: VULVOVAGINAL DRYNESS
     Dosage: 10 ?G, 1X/DAY; IN THE EVENING BEFORE BED
     Route: 067
     Dates: start: 201808, end: 201808
  2. IMVEXXY [Suspect]
     Active Substance: ESTRADIOL
     Indication: VULVOVAGINAL PAIN
     Dosage: 10 ?G, 2X/WEEK; IN THE EVENING BEFORE BED
     Route: 067
     Dates: start: 201808, end: 201809
  3. DIOVAN [Concomitant]
     Active Substance: VALSARTAN
  4. IMVEXXY [Suspect]
     Active Substance: ESTRADIOL
     Dosage: 10 ?G, 1X/WEEK; IN THE EVENING BEFORE BED
     Route: 067
     Dates: start: 201809

REACTIONS (2)
  - Off label use [Not Recovered/Not Resolved]
  - Abdominal pain lower [Recovered/Resolved]

NARRATIVE: CASE EVENT DATE: 2018
